FAERS Safety Report 8361437-1 (Version None)
Quarter: 2012Q2

REPORT INFORMATION
  Report Type: 
  Country: None (occurrence: None)
  Receive Date: 20120515
  Receipt Date: 20110830
  Transmission Date: 20120825
  Serious: No
  Sender: FDA-Public Use
  Company Number: US-ALEXION-A201101330

PATIENT
  Sex: Female

DRUGS (4)
  1. WARFARIN SODIUM [Concomitant]
     Dosage: UNK
  2. FUROSEMIDE [Concomitant]
     Dosage: UNK
     Dates: start: 20110201
  3. SPIRONOLACTONE [Concomitant]
     Dosage: UNK
  4. SOLIRIS [Suspect]
     Indication: PAROXYSMAL NOCTURNAL HAEMOGLOBINURIA
     Dosage: UNK
     Route: 042
     Dates: start: 20100101

REACTIONS (9)
  - PAIN [None]
  - ASCITES [None]
  - HAEMOGLOBIN DECREASED [None]
  - HAPTOGLOBIN DECREASED [None]
  - CHILLS [None]
  - CONDITION AGGRAVATED [None]
  - BLOOD LACTATE DEHYDROGENASE INCREASED [None]
  - RETICULOCYTE COUNT INCREASED [None]
  - MALAISE [None]
